FAERS Safety Report 7030516-3 (Version None)
Quarter: 2010Q4

REPORT INFORMATION
  Report Type: 
  Country: None (occurrence: None)
  Receive Date: 20101006
  Receipt Date: 20100929
  Transmission Date: 20110411
  Serious: Yes (Hospitalization)
  Sender: FDA-Public Use
  Company Number: JP-JNJFOC-20100401232

PATIENT
  Sex: Female
  Weight: 50 kg

DRUGS (5)
  1. DOXORUBICIN HCL (DOXIL) [Suspect]
     Indication: OVARIAN CANCER RECURRENT
     Dosage: CYCLE 2
     Route: 042
  2. DOXORUBICIN HCL (DOXIL) [Suspect]
     Dosage: CYCLE 1
     Route: 042
  3. KYTRIL [Concomitant]
     Indication: PROPHYLAXIS
     Route: 050
  4. DECADRON [Concomitant]
     Indication: PROPHYLAXIS
     Route: 050
  5. SOL-MELCORT [Concomitant]
     Route: 042

REACTIONS (2)
  - DECREASED APPETITE [None]
  - HYPERSENSITIVITY [None]
